FAERS Safety Report 23830686 (Version 1)
Quarter: 2024Q2

REPORT INFORMATION
  Report Type: Spontaneous
  Country: CA (occurrence: CA)
  Receive Date: 20240508
  Receipt Date: 20240508
  Transmission Date: 20240716
  Serious: Yes (Disabling, Other)
  Sender: FDA-Public Use
  Company Number: CA-AUROBINDO-AUR-APL-2024-021529

PATIENT
  Age: 51 Year
  Sex: Female
  Weight: 64 kg

DRUGS (1)
  1. OLANZAPINE [Suspect]
     Active Substance: OLANZAPINE
     Indication: Generalised anxiety disorder
     Dosage: UNK, ONCE A DAY
     Route: 048

REACTIONS (4)
  - Tardive dyskinesia [Recovered/Resolved]
  - Muscle tightness [Recovered/Resolved]
  - Muscle twitching [Recovered/Resolved]
  - Product substitution issue [Recovered/Resolved]
